FAERS Safety Report 5991847-9 (Version None)
Quarter: 2008Q4

REPORT INFORMATION
  Report Type: 
  Country: None (occurrence: None)
  Receive Date: 20081211
  Receipt Date: 20081208
  Transmission Date: 20090506
  Serious: Yes (Other)
  Sender: FDA-Public Use
  Company Number: DE-B.I. PHARMACEUTICALS,INC./RIDGEFIELD-2008-DE-07536DE

PATIENT
  Age: 60 Year
  Sex: Female

DRUGS (3)
  1. SIFROL [Suspect]
     Indication: PARKINSON'S DISEASE
  2. AZELECT [Concomitant]
  3. DICLOFENAC SODIUM [Concomitant]

REACTIONS (1)
  - BREAST CANCER METASTATIC [None]
